FAERS Safety Report 8477020-3 (Version None)
Quarter: 2012Q2

REPORT INFORMATION
  Report Type: 
  Country: None (occurrence: None)
  Receive Date: 20120629
  Receipt Date: 20120621
  Transmission Date: 20120825
  Serious: No
  Sender: FDA-Public Use
  Company Number: US-BIOGENIDEC-2012BI022454

PATIENT
  Sex: Female

DRUGS (1)
  1. AVONEX [Suspect]
     Indication: MULTIPLE SCLEROSIS
     Route: 030
     Dates: start: 19981101

REACTIONS (12)
  - MULTIPLE SCLEROSIS [None]
  - HEARING IMPAIRED [None]
  - GAIT DISTURBANCE [None]
  - OPTIC NEURITIS [None]
  - FALL [None]
  - INJURY [None]
  - AMNESIA [None]
  - DRUG INEFFECTIVE [None]
  - PAIN IN EXTREMITY [None]
  - BALANCE DISORDER [None]
  - BURNING SENSATION [None]
  - DIZZINESS [None]
